FAERS Safety Report 4899562-X (Version None)
Quarter: 2006Q1

REPORT INFORMATION
  Report Type: 
  Country: None (occurrence: None)
  Receive Date: 20060118
  Receipt Date: 20050801
  Transmission Date: 20060701
  Serious: No
  Sender: FDA-Public Use
  Company Number: 2005001472

PATIENT
  Sex: Female

DRUGS (1)
  1. TARCEVA [Suspect]
     Indication: NON-SMALL CELL LUNG CANCER
     Dosage: 150 MG (QD), ORAL
     Route: 048
     Dates: start: 20050725, end: 20050729

REACTIONS (7)
  - ACNE [None]
  - DERMATITIS ACNEIFORM [None]
  - DYSURIA [None]
  - ERYTHEMA [None]
  - FACE OEDEMA [None]
  - RASH [None]
  - SKIN BURNING SENSATION [None]
